FAERS Safety Report 5512653-5 (Version None)
Quarter: 2007Q4

REPORT INFORMATION
  Report Type: 
  Country: None (occurrence: None)
  Receive Date: 20071108
  Receipt Date: 20071030
  Transmission Date: 20080405
  Serious: Yes (Life-Threatening, Other)
  Sender: FDA-Public Use
  Company Number: US-GDP-07403129

PATIENT
  Sex: Female

DRUGS (3)
  1. CLOBEX [Suspect]
     Dosage: (TOPICAL)
     Route: 061
     Dates: end: 20071024
  2. LIPITOR [Concomitant]
  3. ASPIRIN [Concomitant]

REACTIONS (2)
  - ANGIOEDEMA [None]
  - DIZZINESS [None]
